FAERS Safety Report 5531406-5 (Version None)
Quarter: 2007Q4

REPORT INFORMATION
  Report Type: 
  Country: None (occurrence: None)
  Receive Date: 20071203
  Receipt Date: 20071126
  Transmission Date: 20080405
  Serious: Yes (Hospitalization)
  Sender: FDA-Public Use
  Company Number: GB-JNJFOC-20071109540

PATIENT
  Age: 30 Year
  Sex: Female
  Weight: 72 kg

DRUGS (7)
  1. PARACETAMOL [Suspect]
  2. PARACETAMOL [Suspect]
     Indication: PAIN
  3. CHLORPHENIRAMINE TAB [Suspect]
     Indication: PRURITUS
     Route: 042
  4. METRONIDAZOLE [Suspect]
     Indication: DRUG USE FOR UNKNOWN INDICATION
     Route: 042
  5. GENTAMICIN [Suspect]
     Indication: DRUG USE FOR UNKNOWN INDICATION
     Route: 042
  6. MORPHINE [Suspect]
     Indication: PAIN
     Route: 048
  7. CYCLOSPORINE [Concomitant]
     Indication: PSORIASIS
     Route: 048

REACTIONS (2)
  - DRUG EXPOSURE DURING PREGNANCY [None]
  - PUSTULAR PSORIASIS [None]
